FAERS Safety Report 12179673 (Version 8)
Quarter: 2017Q1

REPORT INFORMATION
  Report Type: Spontaneous
  Country: US (occurrence: US)
  Receive Date: 20160314
  Receipt Date: 20170109
  Transmission Date: 20170428
  Serious: Yes (Death, Hospitalization)
  Sender: FDA-Public Use
  Company Number: US-ACTELION-A-US2016-132545

PATIENT
  Age: 71 Year
  Sex: Female

DRUGS (4)
  1. VELETRI [Suspect]
     Active Substance: EPOPROSTENOL
     Indication: PULMONARY HYPERTENSION
     Dosage: 31 NG/KG PER MIN
     Route: 042
     Dates: end: 20161227
  2. OXYGEN. [Concomitant]
     Active Substance: OXYGEN
     Dosage: 3 ML/MIN, UNK
  3. VELETRI [Suspect]
     Active Substance: EPOPROSTENOL
     Dosage: 23 NG/KG, PER MIN
     Route: 042
     Dates: start: 20151202
  4. ADCIRCA [Concomitant]
     Active Substance: TADALAFIL

REACTIONS (7)
  - Glioblastoma [Fatal]
  - Back pain [Unknown]
  - Confusional state [Unknown]
  - Lung disorder [Unknown]
  - Dyspnoea [Unknown]
  - Headache [Unknown]
  - Biopsy brain [Unknown]

NARRATIVE: CASE EVENT DATE: 201611
